FAERS Safety Report 7364634-7 (Version None)
Quarter: 2011Q1

REPORT INFORMATION
  Report Type: 
  Country: None (occurrence: None)
  Receive Date: 20110321
  Receipt Date: 20110311
  Transmission Date: 20110831
  Serious: Yes (Hospitalization, Other)
  Sender: FDA-Public Use
  Company Number: JP-ASTRAZENECA-2011SE13749

PATIENT
  Age: 61 Year
  Sex: Female
  Weight: 52.6 kg

DRUGS (15)
  1. CP 690, 550, PLACEBO [Suspect]
     Indication: RHEUMATOID ARTHRITIS
     Dosage: TWO TIMES A DAY.
     Route: 065
     Dates: start: 20100215, end: 20100630
  2. CRAVIT [Suspect]
     Indication: CONJUNCTIVITIS
     Dosage: THREE TIMES A DAY.
     Route: 031
     Dates: start: 20090101
  3. ALFAROL [Suspect]
     Indication: OSTEOPOROSIS
     Route: 048
     Dates: start: 20041028
  4. CEPHADOL [Suspect]
     Indication: MENIERE'S DISEASE
     Dosage: AS REQUIRED.
     Route: 048
     Dates: start: 20080101
  5. METHYCOBAL [Suspect]
     Indication: MENIERE'S DISEASE
     Dosage: AS REQUIRED.
     Route: 048
     Dates: start: 20080101
  6. ADETPHOS [Suspect]
     Indication: MENIERE'S DISEASE
     Dosage: AS REQUIRED.
     Route: 048
     Dates: start: 20080101
  7. HYALEIN [Suspect]
     Dosage: FOUR TIMES A DAY.
     Route: 031
     Dates: start: 20090101
  8. OMEPRAL [Suspect]
     Indication: GASTRITIS
     Route: 048
     Dates: start: 20070629
  9. METHOTREXATE SODIUM [Suspect]
     Indication: RHEUMATOID ARTHRITIS
     Route: 048
     Dates: start: 20091221, end: 20100628
  10. FOLIAMIN [Suspect]
     Indication: RHEUMATOID ARTHRITIS
     Route: 048
     Dates: start: 20090826, end: 20100629
  11. FOLIAMIN [Suspect]
     Route: 048
     Dates: start: 20100727
  12. METHOTREXATE SODIUM [Suspect]
     Route: 048
     Dates: start: 20100726
  13. FLUMETHOLON [Suspect]
     Indication: CONJUNCTIVITIS
     Dosage: THREE TIMES A DAY.
     Route: 031
     Dates: start: 20090101
  14. NORVASC [Suspect]
     Route: 048
     Dates: start: 20091024
  15. MICARDIS [Suspect]
     Indication: HYPERTENSION
     Route: 048
     Dates: start: 20080620, end: 20100906

REACTIONS (1)
  - BASAL CELL CARCINOMA [None]
